FAERS Safety Report 4827651-4 (Version None)
Quarter: 2005Q4

REPORT INFORMATION
  Report Type: 
  Country: None (occurrence: None)
  Receive Date: 20051114
  Receipt Date: 20051010
  Transmission Date: 20060501
  Serious: Yes (Hospitalization)
  Sender: FDA-Public Use
  Company Number: PL-MERCK-0510POL00007

PATIENT
  Age: 72 Year
  Sex: Male

DRUGS (4)
  1. VIOXX [Suspect]
     Indication: SHOULDER PAIN
     Route: 048
     Dates: start: 20031201, end: 20050601
  2. TELMISARTAN [Concomitant]
     Indication: HYPERTENSION
     Route: 048
  3. [THERAPY UNSPECIFIED] [Concomitant]
     Indication: HYPERTENSION
     Route: 065
     Dates: start: 19850101
  4. DOXAZOSIN MESYLATE [Concomitant]
     Indication: PROSTATISM
     Route: 065
     Dates: start: 19960101

REACTIONS (2)
  - ASTHENIA [None]
  - MYOCARDIAL INFARCTION [None]
